FAERS Safety Report 23157143 (Version 1)
Quarter: 2023Q4

REPORT INFORMATION
  Report Type: Spontaneous
  Country: US (occurrence: None)
  Receive Date: 20231108
  Receipt Date: 20231108
  Transmission Date: 20240110
  Serious: Yes (Death, Other)
  Sender: FDA-Public Use
  Company Number: US-MICRO LABS LIMITED-ML2023-06265

PATIENT
  Age: 28 Year
  Sex: Male

DRUGS (2)
  1. SUCCINYLCHOLINE CHLORIDE [Suspect]
     Active Substance: SUCCINYLCHOLINE CHLORIDE
     Indication: Endotracheal intubation
  2. ETOMIDATE [Concomitant]
     Active Substance: ETOMIDATE
     Indication: Endotracheal intubation

REACTIONS (2)
  - Cardiac arrest [Fatal]
  - Hyperthermia malignant [Fatal]
